FAERS Safety Report 5714783-1 (Version None)
Quarter: 2008Q2

REPORT INFORMATION
  Report Type: 
  Country: None (occurrence: None)
  Receive Date: 20080423
  Receipt Date: 20070129
  Transmission Date: 20081010
  Serious: Yes (Death)
  Sender: FDA-Public Use
  Company Number: US-ROCHE-480294

PATIENT
  Sex: Male
  Weight: 79.8 kg

DRUGS (58)
  1. MYCOPHENOLATE MOFETIL [Suspect]
     Route: 048
     Dates: start: 20061220, end: 20070129
  2. CYCLOPHOSPHAMIDE [Suspect]
     Indication: LUPUS NEPHRITIS
     Dosage: REPORTED ^DOSE (G/M^2) 0.75/1.8)^.
     Route: 042
     Dates: start: 20060901
  3. CYCLOPHOSPHAMIDE [Suspect]
     Dosage: REPORTED ^DOSE (G/M^2) 0.50/1.8.^ DOSE LOWERED DUE TO DECREASED WBC.
     Route: 042
     Dates: start: 20061002
  4. CYCLOPHOSPHAMIDE [Suspect]
     Dosage: REPORTED ^DOSE (G/M^2) 0.50/1.8^.
     Route: 042
     Dates: start: 20061030
  5. CYCLOPHOSPHAMIDE [Suspect]
     Dosage: REPORTED ^DOSE (G/M^2) 0.75/1.8^. PROTOCOL TITRATION.
     Route: 042
     Dates: start: 20061127
  6. PREDNISONE [Suspect]
     Indication: LUPUS NEPHRITIS
     Route: 065
     Dates: start: 20060901
  7. PREDNISONE [Suspect]
     Dosage: DOSE ADJUSTED AS PER PROTOCOL TITRATION.
     Route: 065
     Dates: start: 20060919, end: 20061128
  8. PREDNISONE [Suspect]
     Dosage: DOSE CHANGED DUE TO ^FLARE OF SLE^
     Route: 065
     Dates: start: 20061209
  9. PREDNISONE [Suspect]
     Dosage: DOSE CHANGED DUE TO ^FLARE OF SLE^.
     Route: 065
     Dates: start: 20061210
  10. METHYLPREDNISOLONE [Suspect]
     Indication: LUPUS NEPHRITIS
     Dosage: CHANGE FROM PREDNISONE THERAPY BECAUSE OF HOSPITALISATION FOR SEIZURE.
     Route: 042
     Dates: start: 20061205, end: 20061208
  11. ROSUVASTATIN [Concomitant]
     Dosage: DRUG NAME REPORTED AS ROSUVASTIN.
     Route: 048
     Dates: end: 20070129
  12. VERSED [Concomitant]
     Dates: start: 20061217
  13. FENTANYL CITRATE [Concomitant]
     Dates: start: 20061217, end: 20061217
  14. MORPHINE [Concomitant]
     Indication: PAIN
     Dates: start: 20061216
  15. POTASSIUM CHLORIDE [Concomitant]
     Route: 048
     Dates: end: 20070129
  16. FAMOTIDINE [Concomitant]
     Dosage: INDICATION FOR USE REPORTED AS ^ANTIULCER^
     Route: 048
     Dates: start: 20061216, end: 20061222
  17. LISINOPRIL [Concomitant]
     Indication: HYPERTENSION
     Route: 048
     Dates: start: 20060516
  18. FUROSEMIDE [Concomitant]
     Route: 048
     Dates: start: 20060401
  19. FUROSEMIDE [Concomitant]
     Route: 042
  20. WARFARIN SODIUM [Concomitant]
     Indication: ANTICOAGULANT THERAPY
     Route: 048
     Dates: start: 20060401, end: 20070129
  21. ACTONEL [Concomitant]
     Indication: PROPHYLAXIS
     Dosage: DRUG NAME REPORTED AS ^ACTENOL^.
     Route: 048
     Dates: start: 20060808, end: 20070129
  22. BACTRIM DS [Concomitant]
     Indication: PROPHYLAXIS
     Route: 048
     Dates: start: 20060901, end: 20061018
  23. BACTRIM DS [Concomitant]
     Route: 048
     Dates: start: 20060901, end: 20061018
  24. MESNA [Concomitant]
     Indication: ANTIEMETIC SUPPORTIVE CARE
     Dosage: INDICATION FOR USE REPORTED AS HYDRATION AND ANTIEMETIC.
     Route: 042
     Dates: start: 20060901, end: 20061107
  25. KYTRIL [Concomitant]
     Indication: ANTIEMETIC SUPPORTIVE CARE
     Route: 042
     Dates: start: 20060901, end: 20060901
  26. KYTRIL [Concomitant]
     Route: 042
     Dates: start: 20061030, end: 20061030
  27. KYTRIL [Concomitant]
     Route: 042
     Dates: start: 20061127, end: 20061127
  28. DEXAMETHASONE TAB [Concomitant]
     Indication: ANTIEMETIC SUPPORTIVE CARE
     Route: 042
     Dates: start: 20060901, end: 20060901
  29. DEXAMETHASONE TAB [Concomitant]
     Route: 042
     Dates: start: 20061002, end: 20061002
  30. DEXAMETHASONE TAB [Concomitant]
     Route: 042
     Dates: start: 20061030, end: 20061030
  31. LORAZEPAM [Concomitant]
     Indication: ANTIEMETIC SUPPORTIVE CARE
     Route: 048
     Dates: start: 20060901, end: 20060901
  32. LORAZEPAM [Concomitant]
     Route: 048
     Dates: start: 20061030, end: 20061030
  33. PROCHLORPERAZINE [Concomitant]
     Indication: ANTIEMETIC SUPPORTIVE CARE
     Route: 048
     Dates: start: 20060901, end: 20060901
  34. COZAAR [Concomitant]
     Indication: HYPERTENSION
     Route: 048
     Dates: start: 20060929, end: 20061018
  35. COMPAZINE [Concomitant]
     Indication: ANTIEMETIC SUPPORTIVE CARE
     Route: 048
     Dates: start: 20061002, end: 20061002
  36. COMPAZINE [Concomitant]
     Route: 048
     Dates: start: 20061030, end: 20061030
  37. COMPAZINE [Concomitant]
     Route: 048
     Dates: start: 20061127, end: 20061127
  38. ATIVAN [Concomitant]
     Indication: ANTIEMETIC SUPPORTIVE CARE
     Route: 048
     Dates: start: 20061002, end: 20061002
  39. ATIVAN [Concomitant]
     Route: 048
     Dates: start: 20061127, end: 20061127
  40. ATIVAN [Concomitant]
     Indication: ANXIETY
     Route: 042
     Dates: start: 20061205, end: 20061205
  41. LASIX [Concomitant]
     Route: 042
     Dates: start: 20061002, end: 20061002
  42. FRAGMIN [Concomitant]
     Indication: ANTICOAGULANT THERAPY
     Route: 058
     Dates: start: 20061007
  43. INFLUENZA VACCINE [Concomitant]
     Indication: PROPHYLAXIS
     Route: 030
     Dates: start: 20061113, end: 20061113
  44. DECADRON [Concomitant]
     Indication: ANTIEMETIC SUPPORTIVE CARE
     Route: 042
     Dates: start: 20061127, end: 20061127
  45. DILANTIN [Concomitant]
     Route: 042
     Dates: start: 20061205, end: 20061208
  46. DILANTIN [Concomitant]
     Route: 048
     Dates: start: 20061209, end: 20070129
  47. DILTIAZEM [Concomitant]
     Route: 042
     Dates: start: 20061205, end: 20061205
  48. CEFTRIAXONE [Concomitant]
     Indication: CELLULITIS
     Route: 042
     Dates: start: 20061216, end: 20061220
  49. VANCOMYCIN [Concomitant]
     Indication: CELLULITIS
     Route: 042
     Dates: start: 20061216, end: 20061217
  50. CLINDAMYCIN [Concomitant]
     Indication: CELLULITIS
     Route: 042
     Dates: start: 20061217, end: 20061220
  51. AUGMENTIN '125' [Concomitant]
     Indication: CELLULITIS
     Route: 048
     Dates: start: 20061217, end: 20061223
  52. AUGMENTIN '125' [Concomitant]
     Route: 048
     Dates: start: 20061217, end: 20061223
  53. ALBUMIN (HUMAN) [Concomitant]
     Route: 042
     Dates: start: 20061217, end: 20061222
  54. CHLORTHALIDONE [Concomitant]
     Indication: HYPERTENSION
     Route: 042
     Dates: start: 20061219, end: 20061223
  55. FRESH FROZEN PLASMA [Concomitant]
     Route: 042
     Dates: start: 20061217, end: 20061217
  56. VITAMIN K TAB [Concomitant]
     Route: 048
     Dates: start: 20061217
  57. HEPARIN [Concomitant]
     Indication: ANTICOAGULANT THERAPY
  58. MICONAZOLE 2% [Concomitant]
     Indication: ERYTHEMA ANNULARE
     Dates: start: 20061218, end: 20070129

REACTIONS (1)
  - DEATH [None]
